FAERS Safety Report 15345614 (Version 2)
Quarter: 2018Q3

REPORT INFORMATION
  Report Type: Spontaneous
  Country: US (occurrence: US)
  Receive Date: 20180904
  Receipt Date: 20180914
  Transmission Date: 20181010
  Serious: Yes (Hospitalization, Other)
  Sender: FDA-Public Use
  Company Number: US-ELI_LILLY_AND_COMPANY-US201808009422

PATIENT
  Age: 36 Year
  Sex: Female

DRUGS (9)
  1. REMODULIN [Suspect]
     Active Substance: TREPROSTINIL
     Dosage: 67.9 U, NG/KG/MIN
     Route: 058
     Dates: start: 20180703, end: 20180819
  2. ORENITRAM [Suspect]
     Active Substance: TREPROSTINIL
     Indication: PULMONARY HYPERTENSION
     Dosage: 2.5 MG, UNKNOWN
     Route: 065
     Dates: start: 20180821
  3. ADCIRCA [Suspect]
     Active Substance: TADALAFIL
     Indication: PULMONARY ARTERIAL HYPERTENSION
     Dosage: 40 MG, DAILY
     Route: 065
     Dates: start: 20170420
  4. REMODULIN [Suspect]
     Active Substance: TREPROSTINIL
     Dosage: 0.064 UG/KG, Q1 MINUTE
     Route: 058
     Dates: start: 20180307
  5. REMODULIN [Suspect]
     Active Substance: TREPROSTINIL
     Dosage: 67.9 U, NG/KG/MIN
     Route: 058
     Dates: start: 20180821
  6. REMODULIN [Suspect]
     Active Substance: TREPROSTINIL
     Indication: PULMONARY ARTERIAL HYPERTENSION
     Dosage: 67.9 U, NG/KG/MIN
     Route: 058
     Dates: start: 20170306, end: 20180306
  7. REMODULIN [Suspect]
     Active Substance: TREPROSTINIL
     Dosage: 64.6 U, NG/KG/MIN
     Route: 058
     Dates: start: 20180307
  8. REMODULIN [Suspect]
     Active Substance: TREPROSTINIL
     Dosage: 67.9 U, NG/KG/MIN
     Route: 058
     Dates: start: 20180311, end: 20180526
  9. AMBRISENTAN [Suspect]
     Active Substance: AMBRISENTAN
     Indication: PULMONARY ARTERIAL HYPERTENSION
     Dosage: 10 MG, DAILY
     Route: 065
     Dates: start: 20070420

REACTIONS (6)
  - Catheter site haemorrhage [Recovered/Resolved]
  - Weight decreased [Not Recovered/Not Resolved]
  - Cardiac failure [Recovered/Resolved]
  - Chest pain [Not Recovered/Not Resolved]
  - Diarrhoea [Recovered/Resolved]
  - Infusion site haemorrhage [Recovered/Resolved]

NARRATIVE: CASE EVENT DATE: 20180307
